FAERS Safety Report 22224104 (Version 2)
Quarter: 2023Q2

REPORT INFORMATION
  Report Type: Spontaneous
  Country: DE (occurrence: DE)
  Receive Date: 20230418
  Receipt Date: 20230503
  Transmission Date: 20230722
  Serious: Yes (Other)
  Sender: FDA-Public Use
  Company Number: DE-Dr. FALK Pharma GmbH-BU-062-23

PATIENT
  Age: 73 Year
  Sex: Female
  Weight: 60 kg

DRUGS (7)
  1. ABEMACICLIB [Suspect]
     Active Substance: ABEMACICLIB
     Indication: Product used for unknown indication
     Dosage: 1.4 G, UNKNOWN
     Route: 065
  2. METOPROLOL SUCCINATE [Suspect]
     Active Substance: METOPROLOL SUCCINATE
     Indication: Product used for unknown indication
     Dosage: 950 MG, UNKNOWN
     Route: 065
  3. BUDESONIDE [Suspect]
     Active Substance: BUDESONIDE
     Indication: Product used for unknown indication
     Dosage: 10 CAPSULES, UNKNOWN
     Route: 065
  4. PIPAMPERONE [Suspect]
     Active Substance: PIPAMPERONE
     Indication: Product used for unknown indication
     Dosage: 1.2 G, UNKNOWN
     Route: 065
  5. CALCIUM [Suspect]
     Active Substance: CALCIUM
     Indication: Product used for unknown indication
     Dosage: 12.6 G, UNKNOWN
     Route: 065
  6. RIVAROXABAN [Suspect]
     Active Substance: RIVAROXABAN
     Indication: Product used for unknown indication
     Dosage: 280 MG, UNKNOWN
     Route: 065
  7. LOPERAMIDE [Suspect]
     Active Substance: LOPERAMIDE
     Indication: Product used for unknown indication
     Dosage: 20 MG, UNKNOWN
     Route: 065

REACTIONS (3)
  - Suicide attempt [Unknown]
  - Atrioventricular block first degree [Unknown]
  - Overdose [Unknown]
